FAERS Safety Report 6813313-0 (Version None)
Quarter: 2010Q3

REPORT INFORMATION
  Report Type: 
  Country: None (occurrence: None)
  Receive Date: 20100701
  Receipt Date: 20100624
  Transmission Date: 20110219
  Serious: Yes (Hospitalization)
  Sender: FDA-Public Use
  Company Number: US-PFIZER INC-2010067535

PATIENT
  Age: 83 Year
  Sex: Female

DRUGS (3)
  1. FLAGYL [Suspect]
     Dosage: 500 MG, 4X/DAY
     Dates: start: 20100327, end: 20100405
  2. CIPROFLOXACIN [Suspect]
     Dosage: 500 MG, 2X/DAY
     Dates: start: 20100327, end: 20100405
  3. TRIAMCINOLONE [Concomitant]

REACTIONS (1)
  - POLYP [None]
